FAERS Safety Report 20484645 (Version 1)
Quarter: 2022Q1

REPORT INFORMATION
  Report Type: Spontaneous
  Country: CA (occurrence: CA)
  Receive Date: 20220217
  Receipt Date: 20220217
  Transmission Date: 20220423
  Serious: Yes (Hospitalization, Other)
  Sender: FDA-Public Use
  Company Number: CA-NAPPMUNDI-GBR-2022-0094884

PATIENT
  Sex: Female

DRUGS (8)
  1. MORPHINE SULFATE [Suspect]
     Active Substance: MORPHINE SULFATE
     Indication: Product used for unknown indication
     Dosage: UNK
     Route: 065
  2. ACTEMRA [Suspect]
     Active Substance: TOCILIZUMAB
     Indication: Product used for unknown indication
     Dosage: UNK
     Route: 065
  3. ENBREL [Suspect]
     Active Substance: ETANERCEPT
     Indication: Product used for unknown indication
     Dosage: UNK
     Route: 065
  4. HUMIRA [Suspect]
     Active Substance: ADALIMUMAB
     Indication: Product used for unknown indication
     Dosage: UNK
     Route: 065
  5. METHOTREXATE [Suspect]
     Active Substance: METHOTREXATE
     Indication: Product used for unknown indication
     Dosage: UNK
     Route: 065
  6. SULFASALAZINE [Suspect]
     Active Substance: SULFASALAZINE
     Indication: Product used for unknown indication
     Dosage: 1 G, BID
     Route: 065
  7. ARAVA [Concomitant]
     Active Substance: LEFLUNOMIDE
     Dosage: 10 MG, DAILY
     Route: 065
  8. PLAQUENIL                          /00072602/ [Concomitant]
     Indication: Product used for unknown indication
     Dosage: 200 MG, DAILY
     Route: 065

REACTIONS (7)
  - Pneumonia [Unknown]
  - Dizziness [Unknown]
  - Drug hypersensitivity [Unknown]
  - Headache [Unknown]
  - Infection [Unknown]
  - Nausea [Unknown]
  - Osteoporosis [Unknown]
